FAERS Safety Report 10086756 (Version 6)
Quarter: 2014Q3

REPORT INFORMATION
  Report Type: Report from Study
  Country: US (occurrence: US)
  Receive Date: 20140418
  Receipt Date: 20140801
  Transmission Date: 20150326
  Serious: Yes (Hospitalization)
  Sender: FDA-Public Use
  Company Number: US-ACTELION-A-US2014-97405

PATIENT
  Age: 67 Year
  Sex: Female

DRUGS (4)
  1. VELETRI [Suspect]
     Active Substance: EPOPROSTENOL
     Dosage: 11 NG/KG, PER MIN
     Route: 041
  2. VELETRI [Suspect]
     Active Substance: EPOPROSTENOL
     Indication: COR PULMONALE CHRONIC
     Dosage: 4 NG/KG, PER MIN
     Route: 042
     Dates: start: 20140320
  3. COUMADIN [Concomitant]
     Active Substance: WARFARIN SODIUM
     Dosage: 5 MG, QD
     Route: 048
     Dates: start: 20140324
  4. VELETRI [Suspect]
     Active Substance: EPOPROSTENOL
     Dosage: 6 NG/KG, PER MIN
     Route: 041

REACTIONS (12)
  - Oxygen saturation decreased [Unknown]
  - Catheter site erythema [Unknown]
  - Headache [Unknown]
  - Decreased appetite [Not Recovered/Not Resolved]
  - Catheter site pruritus [Unknown]
  - Catheter site inflammation [Unknown]
  - Diarrhoea [Unknown]
  - Dizziness [Unknown]
  - Nausea [Not Recovered/Not Resolved]
  - Abdominal discomfort [Unknown]
  - Blood potassium decreased [Unknown]
  - Syncope [Unknown]
